FAERS Safety Report 25217836 (Version 1)
Quarter: 2025Q2

REPORT INFORMATION
  Report Type: Report from Study
  Country: CA (occurrence: CA)
  Receive Date: 20250421
  Receipt Date: 20250421
  Transmission Date: 20250716
  Serious: Yes (Other)
  Sender: ABBVIE
  Company Number: CA-ABBVIE-6230552

PATIENT
  Sex: Female

DRUGS (2)
  1. SKYRIZI [Suspect]
     Active Substance: RISANKIZUMAB-RZAA
     Indication: Crohn^s disease
     Route: 058
  2. YUFLYMA [Concomitant]
     Active Substance: ADALIMUMAB-AATY
     Indication: Product used for unknown indication
     Dates: start: 202409

REACTIONS (2)
  - Colostomy [Unknown]
  - Inflammation [Unknown]
